FAERS Safety Report 5859767-8 (Version None)
Quarter: 2008Q3

REPORT INFORMATION
  Report Type: 
  Country: None (occurrence: None)
  Receive Date: 20080827
  Receipt Date: 20080815
  Transmission Date: 20090109
  Serious: Yes (Death, Hospitalization)
  Sender: FDA-Public Use
  Company Number: IT-ROCHE-581360

PATIENT
  Age: 66 Year
  Sex: Female

DRUGS (4)
  1. PEG-INTERFERON A-2A (RO 25-8310) [Suspect]
     Dosage: DOSE REPORTED AS 180 MCG WEEKLY
     Route: 058
  2. RIBAVIRIN [Suspect]
     Route: 048
  3. GANCICLOVIR [Suspect]
     Indication: ANTI-INFECTIVE THERAPY
     Route: 042
  4. HEPARIN [Suspect]
     Indication: THROMBOSIS PROPHYLAXIS
     Route: 065

REACTIONS (2)
  - HEPATIC FAILURE [None]
  - HEPATIC NEOPLASM MALIGNANT [None]
